FAERS Safety Report 10069920 (Version 2)
Quarter: 2014Q3

REPORT INFORMATION
  Report Type: Spontaneous
  Country: AU (occurrence: None)
  Receive Date: 20140408
  Receipt Date: 20140722
  Transmission Date: 20150326
  Serious: Yes (Hospitalization)
  Sender: FDA-Public Use
  Company Number: AUR-APL-2014-04174

PATIENT
  Age: 33 Year
  Sex: Female

DRUGS (4)
  1. METHADONE HYDROCHLORIDE (METHADONE HYDROCHLORIDE) [Concomitant]
  2. LORAZEPAM (LORAZEPAM) [Concomitant]
     Active Substance: LORAZEPAM
  3. AURO-QUETIAPINE 200 [Suspect]
     Active Substance: QUETIAPINE
     Indication: PRODUCT USED FOR UNKNOWN INDICATION
     Route: 048
  4. OLANZAPINE (OLANZAPINE) [Concomitant]
     Active Substance: OLANZAPINE

REACTIONS (7)
  - Galactorrhoea [None]
  - Anxiety [None]
  - Hot flush [None]
  - Agitation [None]
  - Amenorrhoea [None]
  - Blood prolactin increased [None]
  - Thyroxine increased [None]

NARRATIVE: CASE EVENT DATE: 20120411
